FAERS Safety Report 11730575 (Version 1)
Quarter: 2015Q4

REPORT INFORMATION
  Report Type: Spontaneous
  Country: US (occurrence: None)
  Receive Date: 20151112
  Receipt Date: 20151112
  Transmission Date: 20160304
  Serious: Yes (Life-Threatening, Disabling)
  Sender: FDA-Public Use
  Company Number: None

PATIENT
  Age: 54 Year
  Sex: Female

DRUGS (11)
  1. AMLODIPINE [Concomitant]
     Active Substance: AMLODIPINE BESYLATE
  2. LYRICA [Concomitant]
     Active Substance: PREGABALIN
  3. NEXIUM [Concomitant]
     Active Substance: ESOMEPRAZOLE MAGNESIUM
  4. HYDROCHLOROTHIAZIDE 25MG TAB ACCO [Suspect]
     Active Substance: HYDROCHLOROTHIAZIDE
     Indication: BLOOD PRESSURE MEASUREMENT
     Dosage: 25 MG 30 1 DAY MOUTH
     Route: 048
     Dates: start: 201211, end: 20151023
  5. CPAP [Concomitant]
     Active Substance: DEVICE
  6. METHOCARB [Concomitant]
  7. SIMVASTATIN. [Concomitant]
     Active Substance: SIMVASTATIN
  8. WELCHOL [Concomitant]
     Active Substance: COLESEVELAM HYDROCHLORIDE
  9. POTASSIUM [Concomitant]
     Active Substance: POTASSIUM
  10. GABAPENTIN. [Concomitant]
     Active Substance: GABAPENTIN
  11. FLUOXETINE [Concomitant]
     Active Substance: FLUOXETINE HYDROCHLORIDE

REACTIONS (9)
  - Dysuria [None]
  - Musculoskeletal pain [None]
  - Dizziness [None]
  - Back pain [None]
  - Migraine [None]
  - Eye pain [None]
  - Syncope [None]
  - Headache [None]
  - Presyncope [None]

NARRATIVE: CASE EVENT DATE: 20150923
